FAERS Safety Report 5033488-6 (Version None)
Quarter: 2006Q2

REPORT INFORMATION
  Report Type: 
  Country: None (occurrence: None)
  Receive Date: 20060518
  Receipt Date: 20060209
  Transmission Date: 20061013
  Serious: Yes (Other)
  Sender: FDA-Public Use
  Company Number: 2006020670

PATIENT
  Sex: Female

DRUGS (1)
  1. DEPO-PROVERA [Suspect]
     Indication: CONTRACEPTION
     Dosage: 150 MG (150 MG,1ST INJECTION)
     Route: 030
     Dates: start: 20060109, end: 20060109

REACTIONS (5)
  - METRORRHAGIA [None]
  - NASOPHARYNGITIS [None]
  - NAUSEA [None]
  - UNINTENDED PREGNANCY [None]
  - VOMITING [None]
